FAERS Safety Report 14342073 (Version 1)
Quarter: 2018Q1

REPORT INFORMATION
  Report Type: Report from Study
  Country: None (occurrence: US)
  Receive Date: 20180102
  Receipt Date: 20180102
  Transmission Date: 20180509
  Serious: Yes (Hospitalization)
  Sender: FDA-Public Use
  Company Number: US-ABBVIE-17K-163-1995490-00

PATIENT
  Sex: Male

DRUGS (3)
  1. SULFASALAZINE. [Concomitant]
     Active Substance: SULFASALAZINE
     Indication: PRODUCT USED FOR UNKNOWN INDICATION
  2. HUMIRA [Suspect]
     Active Substance: ADALIMUMAB
     Indication: RHEUMATOID ARTHRITIS
     Route: 058
     Dates: start: 20170416, end: 20171124
  3. HUMIRA [Suspect]
     Active Substance: ADALIMUMAB
     Route: 058
     Dates: start: 20171125, end: 20171218

REACTIONS (14)
  - Dyspnoea [Unknown]
  - Joint swelling [Recovered/Resolved]
  - Respiratory tract congestion [Unknown]
  - Arthritis [Unknown]
  - Aggression [Unknown]
  - Arthralgia [Unknown]
  - Haemorrhoids [Unknown]
  - Joint lock [Unknown]
  - Insomnia [Unknown]
  - Joint stiffness [Recovered/Resolved]
  - Increased tendency to bruise [Unknown]
  - Anxiety [Unknown]
  - Dysgeusia [Unknown]
  - Drug ineffective [Unknown]

NARRATIVE: CASE EVENT DATE: 2017
